FAERS Safety Report 5107187-6 (Version None)
Quarter: 2006Q3

REPORT INFORMATION
  Report Type: 
  Country: None (occurrence: None)
  Receive Date: 20060913
  Receipt Date: 20060823
  Transmission Date: 20061208
  Serious: Yes (Other)
  Sender: FDA-Public Use
  Company Number: US200608004868

PATIENT
  Age: 40 Year
  Sex: Female

DRUGS (1)
  1. GEMZAR [Suspect]
     Indication: BREAST CANCER METASTATIC
     Dosage: 1000 MG/M2, OTHER, INTRAVENOUS
     Route: 042

REACTIONS (2)
  - CYSTITIS HAEMORRHAGIC [None]
  - URINARY TRACT INFECTION [None]
